FAERS Safety Report 20157000 (Version 3)
Quarter: 2022Q1

REPORT INFORMATION
  Report Type: Spontaneous
  Country: CA (occurrence: CA)
  Receive Date: 20211207
  Receipt Date: 20220124
  Transmission Date: 20220423
  Serious: Yes (Other)
  Sender: FDA-Public Use
  Company Number: CA-PFIZER INC-202101670112

PATIENT
  Age: 34 Year
  Sex: Male
  Weight: 65.77 kg

DRUGS (1)
  1. XELJANZ [Suspect]
     Active Substance: TOFACITINIB CITRATE
     Indication: Colitis ulcerative
     Dosage: 10 MG, 2X/DAY
     Route: 048
     Dates: start: 20211008

REACTIONS (6)
  - Haematochezia [Not Recovered/Not Resolved]
  - Drug ineffective [Unknown]
  - Mucous stools [Not Recovered/Not Resolved]
  - Diarrhoea [Recovering/Resolving]
  - Pollakiuria [Not Recovered/Not Resolved]
  - Sleep disorder [Not Recovered/Not Resolved]
